FAERS Safety Report 6730809-0 (Version None)
Quarter: 2010Q2

REPORT INFORMATION
  Report Type: 
  Country: None (occurrence: None)
  Receive Date: 20100518
  Receipt Date: 20100512
  Transmission Date: 20101027
  Serious: No
  Sender: FDA-Public Use
  Company Number: US-B.I. PHARMACEUTICALS,INC./RIDGEFIELD-2010-BP-05405BP

PATIENT
  Age: 67 Year
  Sex: Male

DRUGS (3)
  1. FLOMAX [Suspect]
     Indication: DYSURIA
     Dosage: 0.4 MG
     Route: 048
     Dates: start: 20100301
  2. GABAPENTIN [Concomitant]
     Indication: NEUROPATHY PERIPHERAL
  3. VALIUM [Concomitant]
     Indication: ANXIETY

REACTIONS (2)
  - INGUINAL HERNIA [None]
  - VISION BLURRED [None]
